FAERS Safety Report 18142542 (Version 3)
Quarter: 2025Q3

REPORT INFORMATION
  Report Type: Spontaneous
  Country: EU (occurrence: EU)
  Receive Date: 20200813
  Receipt Date: 20250706
  Transmission Date: 20251021
  Serious: Yes (Other)
  Sender: AUROBINDO
  Company Number: EU-ASTRAZENECA-2020SE94996

PATIENT
  Age: 52 Year
  Sex: Female

DRUGS (1)
  1. ATENOLOL [Suspect]
     Active Substance: ATENOLOL
     Indication: Hypertension
     Route: 065

REACTIONS (3)
  - No adverse event [Unknown]
  - Coronavirus infection [Recovered/Resolved]
  - Respiratory failure [Recovering/Resolving]
